FAERS Safety Report 20212247 (Version 1)
Quarter: 2021Q4

REPORT INFORMATION
  Report Type: Spontaneous
  Country: BE (occurrence: BE)
  Receive Date: 20211221
  Receipt Date: 20211221
  Transmission Date: 20220303
  Serious: Yes (Death)
  Sender: FDA-Public Use
  Company Number: BE-AstraZeneca-2021-27728

PATIENT
  Age: 45 Year
  Sex: Male

DRUGS (37)
  1. ERBITUX [Suspect]
     Active Substance: CETUXIMAB
     Indication: Squamous cell carcinoma of head and neck
     Dosage: 400 MG/M2, WEEKLY (1/W)
     Route: 042
     Dates: start: 20210827, end: 20210827
  2. ERBITUX [Suspect]
     Active Substance: CETUXIMAB
     Dosage: 250 MG/M2, WEEKLY (1/W)
     Route: 042
     Dates: start: 20210903, end: 20210903
  3. ERBITUX [Suspect]
     Active Substance: CETUXIMAB
     Dosage: 250 MG/M2, WEEKLY (1/W)
     Route: 042
     Dates: start: 20210910, end: 20210910
  4. ERBITUX [Suspect]
     Active Substance: CETUXIMAB
     Dosage: 250 MG/M2, WEEKLY (1/W)
     Route: 042
     Dates: start: 20210917, end: 20210917
  5. ERBITUX [Suspect]
     Active Substance: CETUXIMAB
     Dosage: 250 MG/M2, WEEKLY (1/W)
     Route: 042
     Dates: start: 20210924, end: 20210924
  6. ERBITUX [Suspect]
     Active Substance: CETUXIMAB
     Dosage: 250 MG/M2, WEEKLY (1/W)
     Route: 042
     Dates: start: 20211001, end: 20211001
  7. ERBITUX [Suspect]
     Active Substance: CETUXIMAB
     Dosage: 250 MG/M2, WEEKLY (1/W)
     Route: 042
     Dates: start: 20211008, end: 20211008
  8. ERBITUX [Suspect]
     Active Substance: CETUXIMAB
     Dosage: 250 MG/M2, WEEKLY (1/W)
     Route: 042
     Dates: start: 20211015, end: 20211015
  9. ERBITUX [Suspect]
     Active Substance: CETUXIMAB
     Dosage: 250 MG/M2, WEEKLY (1/W)
     Route: 042
     Dates: start: 20211022, end: 20211022
  10. ERBITUX [Suspect]
     Active Substance: CETUXIMAB
     Dosage: 250 MG/M2, WEEKLY (1/W)
     Route: 042
     Dates: start: 20211029, end: 20211029
  11. ERBITUX [Suspect]
     Active Substance: CETUXIMAB
     Dosage: 250 MG/M2, WEEKLY (1/W)
     Route: 042
     Dates: start: 20211105, end: 20211105
  12. ERBITUX [Suspect]
     Active Substance: CETUXIMAB
     Dosage: 250 MG/M2, WEEKLY (1/W)
     Route: 042
     Dates: start: 20211112, end: 20211112
  13. MONALIZUMAB [Suspect]
     Active Substance: MONALIZUMAB
     Indication: Squamous cell carcinoma of head and neck
     Dosage: 750 MG, OTHER, EVERY TWO WEEKS
     Route: 042
     Dates: start: 20210827, end: 20210827
  14. MONALIZUMAB [Suspect]
     Active Substance: MONALIZUMAB
     Dosage: 750 MG, OTHER, EVERY TWO WEEKS
     Route: 042
     Dates: start: 20210910, end: 20210910
  15. MONALIZUMAB [Suspect]
     Active Substance: MONALIZUMAB
     Dosage: 750 MG, OTHER, EVERY TWO WEEKS
     Route: 042
     Dates: start: 20210924, end: 20210924
  16. MONALIZUMAB [Suspect]
     Active Substance: MONALIZUMAB
     Dosage: 750 MG, OTHER, EVERY TWO WEEKS
     Route: 042
     Dates: start: 20211008, end: 20211008
  17. MONALIZUMAB [Suspect]
     Active Substance: MONALIZUMAB
     Dosage: 750 MG, OTHER, EVRY TWO WEEKS
     Route: 042
     Dates: start: 20211022, end: 20211022
  18. MONALIZUMAB [Suspect]
     Active Substance: MONALIZUMAB
     Dosage: 750 MG, OTHER, EVERY TWO WEEKS
     Route: 042
     Dates: start: 20211105, end: 20211105
  19. IBUPROFEN [Suspect]
     Active Substance: IBUPROFEN
     Indication: Pain
     Dosage: 400 MG, EVERY 8 HRS
     Route: 048
     Dates: start: 20210225
  20. NUTRISON PROTEIN PLUS MULTI FIBRE [Concomitant]
     Indication: Decreased appetite
     Dosage: 1500 ML, DAILY
     Route: 050
     Dates: start: 20211028
  21. TRANXENE [Concomitant]
     Active Substance: CLORAZEPATE DIPOTASSIUM
     Indication: Psychotic disorder
     Dosage: 50 MG, OTHER, EVERY 12 HOURS
     Route: 048
     Dates: start: 2019
  22. ISOBETADINE [Concomitant]
     Indication: Neck injury
     Dosage: UNK, UNKNOWN
     Route: 061
     Dates: start: 20210903
  23. FENTANYL [Concomitant]
     Active Substance: FENTANYL
     Indication: Pain
     Dosage: 25 UG, OTHER, EVERY THREE DAYS
     Route: 062
     Dates: start: 20210903
  24. TRAMADOL HYDROCHLORIDE [Concomitant]
     Active Substance: TRAMADOL HYDROCHLORIDE
     Indication: Pain
     Dosage: 100 MG, OTHER, EVERY 12 HOURS
     Route: 048
     Dates: start: 20210225
  25. ACETAMINOPHEN [Concomitant]
     Active Substance: ACETAMINOPHEN
     Indication: Pain
     Dosage: 1000 MG, EVERY 6 HRS
     Route: 048
     Dates: start: 20200922
  26. SOLIFENACIN [Concomitant]
     Active Substance: SOLIFENACIN
     Indication: Urinary incontinence
     Dosage: 10 MG, OTHER, EVERY 12 HOURS
     Route: 048
     Dates: start: 20210225
  27. OXYCODONE HYDROCHLORIDE [Concomitant]
     Active Substance: OXYCODONE HYDROCHLORIDE
     Indication: Pain
     Dosage: 5 MG, OTHER, AS NECESSARY
     Route: 048
     Dates: start: 20210823
  28. CICAPLAST [Concomitant]
     Indication: Rash
     Dosage: UNK, OTHER, AS NECESSARY
     Route: 061
     Dates: start: 20210910
  29. ZOLPIDEM [Concomitant]
     Active Substance: ZOLPIDEM TARTRATE
     Indication: Hypersomnia
     Dosage: 10 MG, DAILY
     Route: 048
     Dates: start: 2019
  30. LEVOTHYROXINE [Concomitant]
     Active Substance: LEVOTHYROXINE
     Indication: Hypothyroidism
     Dosage: 50 UG, DAILY
     Route: 048
     Dates: start: 20210329
  31. ALIZAPRIDE [Concomitant]
     Active Substance: ALIZAPRIDE
     Indication: Decreased appetite
     Dosage: 50 MG, OTHER, AS NECESSARY
     Route: 048
     Dates: start: 20211027
  32. TRAMADOL [Concomitant]
     Active Substance: TRAMADOL
     Indication: Pain
     Dosage: 50 MG, DAILY
     Route: 048
     Dates: start: 20210225
  33. LEVOCETIRIZINE [Concomitant]
     Active Substance: LEVOCETIRIZINE
     Indication: Premedication
     Dosage: 5 MG, DAILY
     Route: 048
     Dates: start: 20210827
  34. MINOCYCLINE [Concomitant]
     Active Substance: MINOCYCLINE HYDROCHLORIDE
     Indication: Rash
     Dosage: 50 MG, OTHER, EVERY 12 HOURS
     Route: 048
     Dates: start: 20211027
  35. FORTIMEL COMPACT PROTEIN [Concomitant]
     Indication: Decreased appetite
     Dosage: UNK, UNKNOWN
     Route: 048
     Dates: start: 20210917
  36. MOVICOL [Concomitant]
     Active Substance: POLYETHYLENE GLYCOL 3350\POTASSIUM CHLORIDE\SODIUM BICARBONATE\SODIUM CHLORIDE
     Indication: Constipation prophylaxis
     Dosage: UNK, UNKNOWN
     Route: 048
     Dates: start: 20210823
  37. RISPERIDONE [Concomitant]
     Active Substance: RISPERIDONE
     Indication: Psychotic disorder
     Dosage: 2 MG, DAILY
     Route: 048
     Dates: start: 20210225, end: 20211031

REACTIONS (1)
  - Gastric haemorrhage [Fatal]

NARRATIVE: CASE EVENT DATE: 20211115
